FAERS Safety Report 19452975 (Version 1)
Quarter: 2021Q2

REPORT INFORMATION
  Report Type: Spontaneous
  Country: GB (occurrence: GB)
  Receive Date: 20210623
  Receipt Date: 20210623
  Transmission Date: 20210717
  Serious: No
  Sender: FDA-Public Use
  Company Number: GB-GW PHARMA-202106GBGW02952

PATIENT

DRUGS (6)
  1. CLOBAZAM. [Concomitant]
     Active Substance: CLOBAZAM
     Indication: PRODUCT USED FOR UNKNOWN INDICATION
     Dosage: 12.5 MILLIGRAM, BID (STARTED BEFORE CBD)
     Route: 065
  2. LAMOTRIGINE. [Concomitant]
     Active Substance: LAMOTRIGINE
     Indication: PRODUCT USED FOR UNKNOWN INDICATION
     Dosage: 75 MILLIGRAM, BID (STARTED BEFORE CBD)
     Route: 065
  3. EPIDYOLEX [Suspect]
     Active Substance: CANNABIDIOL
     Dosage: 13.33 MG/KG/DAY, 300 MILLIGRAM, BID
     Route: 048
     Dates: start: 2020
  4. OXCARBAZEPINE. [Concomitant]
     Active Substance: OXCARBAZEPINE
     Indication: PRODUCT USED FOR UNKNOWN INDICATION
     Dosage: 525 MILLIGRAM, BID (STARTED BEFORE CBD)
     Route: 065
  5. EPIDYOLEX [Suspect]
     Active Substance: CANNABIDIOL
     Indication: LENNOX-GASTAUT SYNDROME
     Dosage: UNK (INITIAL DOSE)
     Route: 048
     Dates: start: 20200911, end: 2020
  6. EPIDYOLEX [Suspect]
     Active Substance: CANNABIDIOL
     Dosage: 11.11 MG/KG/DAY, 250 MILLIGRAM, BID (DOSE DECREASED)
     Route: 048

REACTIONS (2)
  - Seizure [Unknown]
  - Diarrhoea [Recovering/Resolving]

NARRATIVE: CASE EVENT DATE: 20201125
